FAERS Safety Report 8570315-4 (Version None)
Quarter: 2012Q3

REPORT INFORMATION
  Report Type: 
  Country: None (occurrence: None)
  Receive Date: 20120803
  Receipt Date: 20120727
  Transmission Date: 20120928
  Serious: Yes (Hospitalization)
  Sender: FDA-Public Use
  Company Number: GXBR2012US001711

PATIENT
  Sex: Male

DRUGS (1)
  1. SULFADIAZINE [Suspect]
     Indication: CENTRAL NERVOUS SYSTEM INFECTION
     Dosage: 500 MG, QID3SDO
     Route: 048
     Dates: start: 20120120

REACTIONS (8)
  - RENAL FAILURE [None]
  - DYSSTASIA [None]
  - MEMORY IMPAIRMENT [None]
  - ASTHENIA [None]
  - CONFUSIONAL STATE [None]
  - FALL [None]
  - ACTIVITIES OF DAILY LIVING IMPAIRED [None]
  - RENAL HAEMORRHAGE [None]
